FAERS Safety Report 25319904 (Version 1)
Quarter: 2025Q2

REPORT INFORMATION
  Report Type: Spontaneous
  Country: US (occurrence: US)
  Receive Date: 20250515
  Receipt Date: 20250515
  Transmission Date: 20250717
  Serious: Yes (Hospitalization)
  Sender: PFIZER
  Company Number: US-PFIZER INC-PV202500056464

PATIENT
  Age: 2 Month
  Sex: Male
  Weight: 11.6 kg

DRUGS (1)
  1. SULFASALAZINE [Suspect]
     Active Substance: SULFASALAZINE
     Indication: Inflammatory bowel disease

REACTIONS (3)
  - Accidental overdose [Unknown]
  - Drug metabolite level high [Unknown]
  - Off label use [Unknown]
